FAERS Safety Report 23454188 (Version 1)
Quarter: 2024Q1

REPORT INFORMATION
  Report Type: Spontaneous
  Country: US (occurrence: US)
  Receive Date: 20240130
  Receipt Date: 20240130
  Transmission Date: 20240410
  Serious: No
  Sender: FDA-Public Use
  Company Number: US-APOTEX-2023AP017526

PATIENT
  Age: 73 Year
  Sex: Male

DRUGS (2)
  1. ALENDRONATE [Suspect]
     Active Substance: ALENDRONATE SODIUM
     Indication: Osteoporosis
     Dosage: 70 MILLIGRAM, Q.WK.
     Route: 048
  2. ZOLEDRONIC ACID [Suspect]
     Active Substance: ZOLEDRONIC ACID
     Indication: Osteoporosis
     Dosage: UNK
     Route: 042

REACTIONS (5)
  - Oral mucosal blistering [Recovered/Resolved]
  - Fatigue [Unknown]
  - Mouth ulceration [Recovered/Resolved]
  - Oral discomfort [Recovered/Resolved]
  - Pyrexia [Unknown]
